FAERS Safety Report 15586903 (Version 1)
Quarter: 2018Q4

REPORT INFORMATION
  Report Type: Spontaneous
  Country: CZ (occurrence: CZ)
  Receive Date: 20181105
  Receipt Date: 20181105
  Transmission Date: 20190205
  Serious: Yes (Death, Hospitalization, Other)
  Sender: FDA-Public Use
  Company Number: CZ-MYLANLABS-2018M1080140

PATIENT
  Age: 43 Year
  Sex: Female

DRUGS (9)
  1. CARBOPLATIN. [Suspect]
     Active Substance: CARBOPLATIN
     Dosage: 2 MG, CYCLE, PALLIATIVE CHEMOTHERAPY 2 MG/AUC, RECEIVED 12 CYCLES
     Dates: start: 2014
  2. CARBOPLATIN. [Suspect]
     Active Substance: CARBOPLATIN
     Indication: OVARIAN CANCER
     Dosage: UNK UNK, QW
     Route: 065
     Dates: start: 201611
  3. CARBOPLATIN. [Suspect]
     Active Substance: CARBOPLATIN
     Dosage: UNK UNK, Q3W,(6 MG/AUC)
     Route: 065
     Dates: start: 20150310
  4. PAXENE                             /00790702/ [Suspect]
     Active Substance: PERINDOPRIL ERBUMINE
     Dosage: 175 MG/M2, Q3W
     Dates: start: 20150310
  5. CARBOPLATIN. [Suspect]
     Active Substance: CARBOPLATIN
     Indication: OVARIAN CANCER
     Dosage: 2 MG, QW,(DOSE: 2 MG/AUC)
     Route: 042
     Dates: start: 2014
  6. PAXENE                             /00790702/ [Suspect]
     Active Substance: PERINDOPRIL ERBUMINE
     Indication: OVARIAN CANCER
     Dosage: UNK UNK, QW
     Route: 065
     Dates: start: 201611
  7. OLAPARIB. [Concomitant]
     Active Substance: OLAPARIB
     Indication: OVARIAN CANCER
     Dosage: 400 MG, QD, 16 TABLETS A DAY PERMANENTLY DISCONTINUED IN OCT-2016
     Dates: start: 20150921, end: 201610
  8. PAXENE                             /00790702/ [Suspect]
     Active Substance: PERINDOPRIL ERBUMINE
     Indication: OVARIAN CANCER
     Dosage: 90 MG/M2, QW
     Route: 042
     Dates: start: 2014
  9. PACLITAXEL. [Suspect]
     Active Substance: PACLITAXEL
     Indication: OVARIAN CANCER
     Dosage: 90 MG/M2, CYCLE, PALLIATIVE CHEMOTHERAPY RECEIVED 12 CYCLES OF CHEMOTHERAPY
     Dates: start: 2014

REACTIONS (7)
  - Spinal pain [Unknown]
  - Nausea [Unknown]
  - Pulmonary embolism [Unknown]
  - Neutropenia [Unknown]
  - Hypersensitivity [Unknown]
  - Death [Fatal]
  - Fatigue [Unknown]

NARRATIVE: CASE EVENT DATE: 2014
